FAERS Safety Report 4727125-5 (Version None)
Quarter: 2005Q3

REPORT INFORMATION
  Report Type: 
  Country: None (occurrence: None)
  Receive Date: 20050726
  Receipt Date: 20050726
  Transmission Date: 20060218
  Serious: Yes (Other)
  Sender: FDA-Public Use
  Company Number: None

PATIENT
  Age: 61 Year
  Sex: Male
  Weight: 87.1 kg

DRUGS (7)
  1. FLOMAX [Suspect]
  2. COLESTIPOL HCL [Concomitant]
  3. AMIODARONE HCL [Concomitant]
  4. METOPROLOL TARTRATE [Concomitant]
  5. EZETIMIBE [Concomitant]
  6. TAMSULOSIN HCL [Concomitant]
  7. COUMADIN [Concomitant]

REACTIONS (1)
  - HYPOTENSION [None]
